FAERS Safety Report 4689265-9 (Version None)
Quarter: 2005Q2

REPORT INFORMATION
  Report Type: 
  Country: None (occurrence: None)
  Receive Date: 20050608
  Receipt Date: 20050322
  Transmission Date: 20051028
  Serious: No
  Sender: FDA-Public Use
  Company Number: 2005-BP-04777BP

PATIENT
  Age: 59 Year
  Sex: Male

DRUGS (11)
  1. SPIRIVA [Suspect]
     Indication: CHRONIC OBSTRUCTIVE PULMONARY DISEASE
     Dosage: 18 MCG (18 MCG, QD), IH
     Route: 055
     Dates: start: 20050317
  2. CLONAZEPAM [Concomitant]
  3. THEOPHYLLINE [Concomitant]
  4. TOPROL-XL [Concomitant]
  5. SINGULAIR (MONTELUKAST) [Concomitant]
  6. ALBUTEROL [Concomitant]
  7. ZANTAC [Concomitant]
  8. FLOVENT [Concomitant]
  9. CARBAMAZEPINE [Concomitant]
  10. HYTRIN [Concomitant]
  11. VALPROATE SODIUM [Concomitant]

REACTIONS (2)
  - DRUG INEFFECTIVE [None]
  - PULMONARY OEDEMA [None]
